FAERS Safety Report 23622670 (Version 7)
Quarter: 2024Q2

REPORT INFORMATION
  Report Type: Spontaneous
  Country: US (occurrence: US)
  Receive Date: 20240312
  Receipt Date: 20240523
  Transmission Date: 20240715
  Serious: Yes (Life-Threatening, Other)
  Sender: FDA-Public Use
  Company Number: US-SANOFI-01974491

PATIENT
  Age: 65 Year
  Sex: Female

DRUGS (6)
  1. LANTUS [Suspect]
     Active Substance: INSULIN GLARGINE
     Indication: Type 1 diabetes mellitus
     Dosage: 35 IU, BID
     Route: 065
     Dates: start: 20240303, end: 20240303
  2. LANTUS [Suspect]
     Active Substance: INSULIN GLARGINE
     Dosage: 32 IU, BID
     Route: 065
     Dates: start: 20240306, end: 202403
  3. LANTUS [Suspect]
     Active Substance: INSULIN GLARGINE
     Dosage: 30 IU, BID
     Route: 065
     Dates: start: 20240307, end: 202403
  4. LANTUS [Suspect]
     Active Substance: INSULIN GLARGINE
     Dosage: 30 IU, QD
     Route: 065
     Dates: start: 20240308, end: 202403
  5. LANTUS [Suspect]
     Active Substance: INSULIN GLARGINE
     Dosage: 33 IU, QD
     Dates: start: 20240311
  6. LANTUS [Suspect]
     Active Substance: INSULIN GLARGINE
     Dosage: 12 IU, BID
     Route: 065

REACTIONS (7)
  - Blood glucose decreased [Recovered/Resolved]
  - Loss of consciousness [Recovered/Resolved]
  - Tremor [Recovered/Resolved]
  - Illness [Recovered/Resolved]
  - Off label use [Recovered/Resolved]
  - Intentional product misuse [Recovered/Resolved]
  - Abdominal discomfort [Unknown]

NARRATIVE: CASE EVENT DATE: 20240301
